FAERS Safety Report 7588416-6 (Version None)
Quarter: 2011Q2

REPORT INFORMATION
  Report Type: 
  Country: None (occurrence: None)
  Receive Date: 20110627
  Receipt Date: 20110617
  Transmission Date: 20111010
  Serious: Yes (Other)
  Sender: FDA-Public Use
  Company Number: 1000021141

PATIENT
  Age: 80 Year
  Sex: Female

DRUGS (5)
  1. LISINOPRIL (LISINOPRIL) (TABLETS) (LISINOPRIL) [Concomitant]
  2. THYROID TAB [Suspect]
     Indication: HYPOTHYROIDISM
     Dosage: 60 MG (60 MG, 1 IN 1 D), ORAL 45 MG (45 MG, 1 IN 1 D), ORAL 30 MG (30 MG, 1 IN 1 D), ORAL
     Route: 048
     Dates: start: 20110501
  3. THYROID TAB [Suspect]
     Indication: HYPOTHYROIDISM
     Dosage: 60 MG (60 MG, 1 IN 1 D), ORAL 45 MG (45 MG, 1 IN 1 D), ORAL 30 MG (30 MG, 1 IN 1 D), ORAL
     Route: 048
     Dates: start: 20110525, end: 20110501
  4. THYROID TAB [Suspect]
     Indication: HYPOTHYROIDISM
     Dosage: 60 MG (60 MG, 1 IN 1 D), ORAL 45 MG (45 MG, 1 IN 1 D), ORAL 30 MG (30 MG, 1 IN 1 D), ORAL
     Route: 048
     Dates: start: 19710101, end: 20110524
  5. TOPROL XL (METOPROLOL SUCCINATE) (TABLETS) (METOPROLOL SUCCINATE) [Concomitant]

REACTIONS (10)
  - BLOOD THYROID STIMULATING HORMONE INCREASED [None]
  - BLOOD PRESSURE SYSTOLIC INCREASED [None]
  - HYPOAESTHESIA [None]
  - ABDOMINAL PAIN [None]
  - ASTHENIA [None]
  - FEELING COLD [None]
  - GAIT DISTURBANCE [None]
  - TRI-IODOTHYRONINE INCREASED [None]
  - THYROXINE INCREASED [None]
  - FEELING HOT [None]
